FAERS Safety Report 7545891-0 (Version None)
Quarter: 2011Q2

REPORT INFORMATION
  Report Type: 
  Country: None (occurrence: None)
  Receive Date: 20110607
  Receipt Date: 20110526
  Transmission Date: 20111010
  Serious: Yes (Hospitalization)
  Sender: FDA-Public Use
  Company Number: 2011-1722

PATIENT
  Sex: Female

DRUGS (1)
  1. DYSPORT [Suspect]
     Indication: SKIN WRINKLING
     Dosage: 75 UNITS (75 UNITS, SINGLE CYCLE), PARENTERAL
     Route: 051
     Dates: start: 20110401, end: 20110401

REACTIONS (8)
  - MIGRAINE [None]
  - FEELING ABNORMAL [None]
  - PYREXIA [None]
  - ASTHENIA [None]
  - HYPERTENSION [None]
  - DYSPNOEA [None]
  - WRONG TECHNIQUE IN DRUG USAGE PROCESS [None]
  - OFF LABEL USE [None]
